FAERS Safety Report 8871555 (Version 1)
Quarter: 2012Q4

REPORT INFORMATION
  Report Type: 
  Country: US (occurrence: US)
  Receive Date: 20121023
  Receipt Date: 20121023
  Transmission Date: 20130627
  Serious: Yes (Hospitalization)
  Sender: FDA-Public Use
  Company Number: US-ASTELLAS-2012US007581

PATIENT
  Age: 23 Year
  Sex: Male

DRUGS (2)
  1. PROGRAF [Suspect]
     Indication: RENAL TRANSPLANT
     Dosage: 5 mg, bid
     Route: 048
     Dates: start: 20081115
  2. MYCOPHENOLATE [Concomitant]
     Indication: RENAL TRANSPLANT
     Dosage: 25 mg, UID/QD
     Route: 048
     Dates: start: 20120113

REACTIONS (1)
  - Device related infection [Not Recovered/Not Resolved]
